FAERS Safety Report 5396633-9 (Version None)
Quarter: 2007Q3

REPORT INFORMATION
  Report Type: 
  Country: None (occurrence: None)
  Receive Date: 20070725
  Receipt Date: 20070718
  Transmission Date: 20080115
  Serious: Yes (Other)
  Sender: FDA-Public Use
  Company Number: A0656493A

PATIENT
  Age: 21 Year
  Sex: Female
  Weight: 112.3 kg

DRUGS (8)
  1. WELLBUTRIN SR [Suspect]
     Indication: DRUG USE FOR UNKNOWN INDICATION
     Dosage: 150MG TWICE PER DAY
     Route: 048
     Dates: start: 20070312, end: 20070427
  2. PAXIL [Suspect]
     Indication: DRUG USE FOR UNKNOWN INDICATION
     Dosage: 20MG TWICE PER DAY
     Route: 048
  3. ATENOLOL [Concomitant]
  4. IMITREX [Concomitant]
  5. PAXIL [Concomitant]
  6. ELAVIL [Concomitant]
  7. DARVOCET [Concomitant]
  8. XANAX [Concomitant]

REACTIONS (5)
  - CONTUSION [None]
  - DRUG EFFECT DECREASED [None]
  - DRUG WITHDRAWAL SYNDROME [None]
  - GRAND MAL CONVULSION [None]
  - POSTICTAL STATE [None]
